FAERS Safety Report 6843731-6 (Version None)
Quarter: 2010Q3

REPORT INFORMATION
  Report Type: 
  Country: None (occurrence: None)
  Receive Date: 20100715
  Receipt Date: 20100709
  Transmission Date: 20110219
  Serious: Yes (Hospitalization, Other)
  Sender: FDA-Public Use
  Company Number: US-BRISTOL-MYERS SQUIBB COMPANY-15188881

PATIENT
  Age: 59 Year
  Sex: Female
  Weight: 118 kg

DRUGS (15)
  1. METFORMIN HCL [Suspect]
  2. IMODIUM [Concomitant]
     Dosage: 1 DOAGE FORM=8-9 PER DAY
  3. NOVOLOG [Concomitant]
     Dosage: NOVOLOG FLEX-PEN
  4. MENTAX [Concomitant]
     Indication: DIABETIC NEUROPATHY
  5. MAVIK [Concomitant]
     Indication: HYPERTENSION
  6. VERAPAMIL [Concomitant]
     Indication: MIGRAINE
  7. NEXIUM [Concomitant]
     Indication: GASTROOESOPHAGEAL REFLUX DISEASE
  8. ALLEGRA [Concomitant]
     Indication: HYPERSENSITIVITY
  9. IMITREX [Concomitant]
     Indication: MIGRAINE
  10. AMITRIPTYLINE HYDROCHLORIDE [Concomitant]
     Indication: HEADACHE
  11. NEURONTIN [Concomitant]
     Indication: NEURALGIA
  12. ESTROGEN [Concomitant]
  13. HYDROCHLOROTHIAZIDE [Concomitant]
  14. SYMBICORT [Concomitant]
  15. SUCRALFATE [Concomitant]

REACTIONS (5)
  - ABDOMINAL DISTENSION [None]
  - DIARRHOEA [None]
  - GASTROENTERITIS BACTERIAL [None]
  - NAUSEA [None]
  - WEIGHT DECREASED [None]
